FAERS Safety Report 7870597-8 (Version None)
Quarter: 2011Q4

REPORT INFORMATION
  Report Type: 
  Country: None (occurrence: None)
  Receive Date: 20111029
  Receipt Date: 20110218
  Transmission Date: 20120403
  Serious: No
  Sender: FDA-Public Use
  Company Number: US-AMGEN-USASP2011009682

PATIENT
  Age: 73 Year
  Sex: Female

DRUGS (3)
  1. ENBREL [Suspect]
     Indication: RHEUMATOID ARTHRITIS
     Dosage: UNK
     Dates: start: 20110214
  2. METHOTREXATE [Concomitant]
  3. ENBREL [Suspect]
     Dates: start: 20110214

REACTIONS (5)
  - MENTAL IMPAIRMENT [None]
  - MALAISE [None]
  - EYE OPERATION [None]
  - BRONCHITIS [None]
  - PRODUCTIVE COUGH [None]
